FAERS Safety Report 23154480 (Version 1)
Quarter: 2023Q4

REPORT INFORMATION
  Report Type: Spontaneous
  Country: CN (occurrence: CN)
  Receive Date: 20231107
  Receipt Date: 20231107
  Transmission Date: 20240110
  Serious: Yes (Other)
  Sender: FDA-Public Use
  Company Number: CN-ELI_LILLY_AND_COMPANY-CN202310017003

PATIENT
  Age: 61 Year
  Sex: Female

DRUGS (1)
  1. SELPERCATINIB [Suspect]
     Active Substance: SELPERCATINIB
     Indication: Neoplasm malignant
     Dosage: 80 MG, BID
     Route: 048
     Dates: start: 20230903, end: 20231021

REACTIONS (9)
  - Drug-induced liver injury [Unknown]
  - Asthenia [Unknown]
  - Incorrect dose administered [Unknown]
  - Neutrophil percentage decreased [Unknown]
  - Red blood cell count decreased [Unknown]
  - Haematocrit decreased [Unknown]
  - Lymphocyte percentage increased [Unknown]
  - Haemoglobin decreased [Unknown]
  - Fatigue [Unknown]

NARRATIVE: CASE EVENT DATE: 20230903
